FAERS Safety Report 15263290 (Version 1)
Quarter: 2018Q3

REPORT INFORMATION
  Report Type: Spontaneous
  Country: US (occurrence: US)
  Receive Date: 20180810
  Receipt Date: 20180810
  Transmission Date: 20181010
  Serious: Yes (Life-Threatening)
  Sender: FDA-Public Use
  Company Number: US-ROCHE-2157597

PATIENT
  Age: 42 Year
  Sex: Female
  Weight: 86 kg

DRUGS (16)
  1. FUROSEMIDE. [Concomitant]
     Active Substance: FUROSEMIDE
     Dosage: ONCE A DAY
     Route: 065
  2. TRIAMCINOLONE ACETONIDE. [Concomitant]
     Active Substance: TRIAMCINOLONE ACETONIDE
     Dosage: 2?3 TIMES A DAY
     Route: 061
  3. ALEVE [Concomitant]
     Active Substance: NAPROXEN SODIUM
     Route: 048
     Dates: start: 20160531
  4. ADVIL [Concomitant]
     Active Substance: IBUPROFEN
     Dosage: 4 PO Q8 HRS
     Route: 048
     Dates: start: 20160530
  5. VIIBRYD [Concomitant]
     Active Substance: VILAZODONE HYDROCHLORIDE
     Route: 065
     Dates: start: 20131204
  6. BACLOFEN. [Concomitant]
     Active Substance: BACLOFEN
     Route: 065
  7. BACLOFEN. [Concomitant]
     Active Substance: BACLOFEN
     Route: 048
     Dates: start: 20150901
  8. OCREVUS [Suspect]
     Active Substance: OCRELIZUMAB
     Indication: RELAPSING-REMITTING MULTIPLE SCLEROSIS
     Dosage: DAY 1 AND DAY 15
     Route: 042
     Dates: start: 20171031, end: 20180509
  9. OCREVUS [Suspect]
     Active Substance: OCRELIZUMAB
     Route: 042
  10. SOLU?MEDROL [Concomitant]
     Active Substance: METHYLPREDNISOLONE SODIUM SUCCINATE
     Route: 065
     Dates: start: 20150909
  11. KLOR?CON M10 [Concomitant]
     Active Substance: POTASSIUM CHLORIDE
     Route: 065
  12. SKELAXIN [Concomitant]
     Active Substance: METAXALONE
     Route: 048
     Dates: start: 20151229
  13. FISH OIL [Concomitant]
     Active Substance: FISH OIL
     Route: 065
  14. MAGNESIUM ACETATE [Concomitant]
     Active Substance: MAGNESIUM ACETATE
     Route: 065
  15. MACROBID (UNITED STATES) [Concomitant]
     Route: 048
     Dates: start: 20161227
  16. AMPYRA [Concomitant]
     Active Substance: DALFAMPRIDINE
     Route: 048

REACTIONS (1)
  - Swelling [Not Recovered/Not Resolved]

NARRATIVE: CASE EVENT DATE: 20180701
